FAERS Safety Report 23898322 (Version 2)
Quarter: 2024Q2

REPORT INFORMATION
  Report Type: Report from Study
  Country: US (occurrence: US)
  Receive Date: 20240524
  Receipt Date: 20240605
  Transmission Date: 20240716
  Serious: No
  Sender: FDA-Public Use
  Company Number: US-ALXN-202405USA001311US

PATIENT
  Sex: Female

DRUGS (1)
  1. STRENSIQ [Suspect]
     Active Substance: ASFOTASE ALFA
     Indication: Phosphorus metabolism disorder
     Dosage: UNK
     Route: 065
     Dates: start: 20230817

REACTIONS (4)
  - Hypersensitivity [Unknown]
  - Injection site urticaria [Unknown]
  - Pyrexia [Unknown]
  - Product administration error [Unknown]

NARRATIVE: CASE EVENT DATE: 20230828
